FAERS Safety Report 14071840 (Version 1)
Quarter: 2017Q4

REPORT INFORMATION
  Report Type: Spontaneous
  Country: US (occurrence: US)
  Receive Date: 20171011
  Receipt Date: 20171011
  Transmission Date: 20180321
  Serious: No
  Sender: FDA-Public Use
  Company Number: US-PFIZER INC-2017415179

PATIENT
  Age: 38 Year
  Sex: Male

DRUGS (1)
  1. SKELAXIN [Suspect]
     Active Substance: METAXALONE
     Indication: MUSCLE SPASMS
     Dosage: 800 MG, AS NEEDED
     Route: 048

REACTIONS (3)
  - Impaired driving ability [Unknown]
  - Musculoskeletal disorder [Unknown]
  - Product use in unapproved indication [Unknown]
